FAERS Safety Report 14014922 (Version 2)
Quarter: 2017Q4

REPORT INFORMATION
  Report Type: Spontaneous
  Country: US (occurrence: US)
  Receive Date: 20170927
  Receipt Date: 20171031
  Transmission Date: 20180321
  Serious: No
  Sender: FDA-Public Use
  Company Number: PHEH2017US029476

PATIENT
  Sex: Female

DRUGS (1)
  1. TEGRETOL [Suspect]
     Active Substance: CARBAMAZEPINE
     Indication: PRODUCT USED FOR UNKNOWN INDICATION
     Route: 065

REACTIONS (14)
  - Urine output increased [Unknown]
  - Fear [Unknown]
  - Joint crepitation [Unknown]
  - Ocular hyperaemia [Unknown]
  - Headache [Unknown]
  - Hair texture abnormal [Unknown]
  - Dehydration [Unknown]
  - Diarrhoea [Unknown]
  - Breast atrophy [Unknown]
  - Dry skin [Unknown]
  - Alopecia [Unknown]
  - Product physical issue [Unknown]
  - Hair growth abnormal [Unknown]
  - Pigmentation disorder [Unknown]
